FAERS Safety Report 20901602 (Version 2)
Quarter: 2022Q2

REPORT INFORMATION
  Report Type: Spontaneous
  Country: JP (occurrence: JP)
  Receive Date: 20220601
  Receipt Date: 20220607
  Transmission Date: 20220721
  Serious: No
  Sender: FDA-Public Use
  Company Number: JP-ALLERGAN-2217726US

PATIENT
  Sex: Male

DRUGS (7)
  1. ASENAPINE MALEATE [Suspect]
     Active Substance: ASENAPINE MALEATE
     Indication: Schizophrenia
     Dosage: 20 MG A DAY TWICE DAILY
     Route: 060
  2. DULOXETINE HYDROCHLORIDE [Suspect]
     Active Substance: DULOXETINE HYDROCHLORIDE
     Indication: Schizophrenia
     Dosage: 40 MG, QD
     Route: 048
  3. ARIPIPRAZOLE [Suspect]
     Active Substance: ARIPIPRAZOLE
     Indication: Schizophrenia
     Dosage: 12 MG
     Route: 048
  4. BIPERIDEN HYDROCHLORIDE [Concomitant]
     Active Substance: BIPERIDEN HYDROCHLORIDE
  5. SUVOREXANT [Concomitant]
     Active Substance: SUVOREXANT
  6. NITRAZEPAM [Concomitant]
     Active Substance: NITRAZEPAM
  7. LORAZEPAM [Concomitant]
     Active Substance: LORAZEPAM

REACTIONS (7)
  - Listless [Unknown]
  - Off label use [Unknown]
  - Anxiety [Unknown]
  - Extrapyramidal disorder [Unknown]
  - Hypoaesthesia [Unknown]
  - Somnolence [Unknown]
  - Therapeutic product effect incomplete [Unknown]
